FAERS Safety Report 6414900-4 (Version None)
Quarter: 2009Q4

REPORT INFORMATION
  Report Type: 
  Country: None (occurrence: None)
  Receive Date: 20091026
  Receipt Date: 20090325
  Transmission Date: 20100525
  Serious: No
  Sender: FDA-Public Use
  Company Number: US-ABBOTT-09P-163-0564878-00

PATIENT
  Sex: Female
  Weight: 55.842 kg

DRUGS (2)
  1. LUPRON DEPOT [Suspect]
     Indication: ENDOMETRIOSIS
     Dosage: ONCE A MONTH FOR THREE MONTHS
     Route: 050
     Dates: start: 20090101
  2. XANAX [Concomitant]
     Indication: ANXIETY
     Route: 048

REACTIONS (1)
  - HOT FLUSH [None]
